FAERS Safety Report 4350708-1 (Version None)
Quarter: 2004Q2

REPORT INFORMATION
  Report Type: 
  Country: None (occurrence: None)
  Receive Date: 20040430
  Receipt Date: 20031121
  Transmission Date: 20050107
  Serious: Yes (Hospitalization)
  Sender: FDA-Public Use
  Company Number: US-MERCK-0311USA02577

PATIENT
  Age: 51 Year
  Sex: Male

DRUGS (1)
  1. VIOXX [Suspect]
     Indication: LOCALISED OSTEOARTHRITIS
     Route: 048
     Dates: start: 20031001, end: 20031115

REACTIONS (1)
  - LACUNAR INFARCTION [None]
